FAERS Safety Report 19661238 (Version 1)
Quarter: 2021Q3

REPORT INFORMATION
  Report Type: Spontaneous
  Country: US (occurrence: US)
  Receive Date: 20210805
  Receipt Date: 20210805
  Transmission Date: 20211014
  Serious: No
  Sender: FDA-Public Use
  Company Number: None

PATIENT
  Age: 75 Year
  Sex: Female
  Weight: 66.6 kg

DRUGS (14)
  1. LEVOTHYROXINE. [Concomitant]
     Active Substance: LEVOTHYROXINE
  2. SPIRONOLACTONE. [Concomitant]
     Active Substance: SPIRONOLACTONE
  3. PRESERVATIVE #2 [Concomitant]
  4. LANAPRAZOLE [Concomitant]
  5. GABAPENTIN. [Concomitant]
     Active Substance: GABAPENTIN
  6. LOVISTATIN [Concomitant]
  7. MESALAMINE 12 MG 2 X DAY [Suspect]
     Active Substance: MESALAMINE
     Indication: CROHN^S DISEASE
     Dosage: ?          QUANTITY:2 CAPSULE(S);?
     Route: 048
  8. MYRBETRIQ [Concomitant]
     Active Substance: MIRABEGRON
  9. 75 KLOR?CON [Concomitant]
  10. RESTASIS [Concomitant]
     Active Substance: CYCLOSPORINE
  11. VITAMINS NOS [Concomitant]
     Active Substance: VITAMINS
  12. PROLIA [Concomitant]
     Active Substance: DENOSUMAB
  13. PATADAY [Concomitant]
     Active Substance: OLOPATADINE HYDROCHLORIDE
  14. CRANBERRY PILLS [Concomitant]

REACTIONS (9)
  - Gastrointestinal pain [None]
  - Magnetic resonance imaging abnormal [None]
  - Abdominal pain lower [None]
  - Gastrointestinal disorder [None]
  - Gastrointestinal motility disorder [None]
  - Dyspnoea [None]
  - Product substitution issue [None]
  - Lung disorder [None]
  - Renal disorder [None]

NARRATIVE: CASE EVENT DATE: 20200605
